FAERS Safety Report 4475961-5 (Version None)
Quarter: 2004Q3

REPORT INFORMATION
  Report Type: 
  Country: None (occurrence: None)
  Receive Date: 20040923
  Receipt Date: 20040709
  Transmission Date: 20050211
  Serious: No
  Sender: FDA-Public Use
  Company Number: USA040772311

PATIENT
  Age: 78 Year
  Sex: Female

DRUGS (3)
  1. FORTEO [Suspect]
     Indication: OSTEOPOROSIS
     Dates: start: 20040501
  2. EVISTA [Suspect]
     Indication: OSTEOPOROSIS
     Dates: start: 20031001, end: 20040101
  3. FOSAMAX [Concomitant]

REACTIONS (3)
  - DYSPEPSIA [None]
  - HEADACHE [None]
  - INJECTION SITE RASH [None]
